FAERS Safety Report 4336945-0 (Version None)
Quarter: 2004Q1

REPORT INFORMATION
  Report Type: 
  Country: None (occurrence: None)
  Receive Date: 20040329
  Receipt Date: 20040113
  Transmission Date: 20041129
  Serious: No
  Sender: FDA-Public Use
  Company Number: USA040156515

PATIENT
  Age: 53 Year
  Sex: Female
  Weight: 54 kg

DRUGS (3)
  1. STRATTERA [Suspect]
     Indication: ATTENTION DEFICIT/HYPERACTIVITY DISORDER
     Dosage: 100 MG/DAY
     Dates: start: 20040110
  2. HORMONE REPLACEMENT THERAPY [Concomitant]
  3. ADDERALL 10 [Concomitant]

REACTIONS (3)
  - DISTURBANCE IN ATTENTION [None]
  - NAUSEA [None]
  - SOMNOLENCE [None]
